FAERS Safety Report 9797848 (Version 1)
Quarter: 2013Q4

REPORT INFORMATION
  Report Type: Spontaneous
  Country: JP (occurrence: None)
  Receive Date: 20131231
  Receipt Date: 20131231
  Transmission Date: 20140711
  Serious: Yes (Death, Life-Threatening, Hospitalization, Other)
  Sender: FDA-Public Use
  Company Number: CO-OR-JP-2013-234

PATIENT
  Age: 37 Year
  Sex: Male

DRUGS (3)
  1. PREDNISOLONE (PREDNISOLONE, PREDNISOLONE) [Suspect]
     Indication: IMMUNOSUPPRESSION
  2. MYCOPHENOLATE MOFETIL [Suspect]
     Indication: IMMUNOSUPPRESSION
  3. BASILIXIMAB [Suspect]
     Indication: IMMUNOSUPPRESSION

REACTIONS (13)
  - Acute graft versus host disease [None]
  - Pyrexia [None]
  - Diarrhoea [None]
  - Hepatic function abnormal [None]
  - Rash [None]
  - Drug resistance [None]
  - Aspartate aminotransferase increased [None]
  - Alanine aminotransferase increased [None]
  - Pancytopenia [None]
  - Hypotension [None]
  - Respiratory failure [None]
  - Pneumonia [None]
  - Sepsis [None]
